FAERS Safety Report 7146337-7 (Version None)
Quarter: 2010Q4

REPORT INFORMATION
  Report Type: 
  Country: None (occurrence: None)
  Receive Date: 20101208
  Receipt Date: 20101130
  Transmission Date: 20110411
  Serious: Yes (Life-Threatening, Hospitalization)
  Sender: FDA-Public Use
  Company Number: NL-TEVA-258599ISR

PATIENT
  Sex: Female
  Weight: 90 kg

DRUGS (1)
  1. MIRTAZAPINE [Suspect]
     Indication: INSOMNIA
     Dates: start: 20090828, end: 20101031

REACTIONS (2)
  - CEREBROVASCULAR ACCIDENT [None]
  - WEIGHT INCREASED [None]
